FAERS Safety Report 15968811 (Version 1)
Quarter: 2019Q1

REPORT INFORMATION
  Report Type: Report from Study
  Country: IN (occurrence: IN)
  Receive Date: 20190215
  Receipt Date: 20190215
  Transmission Date: 20190418
  Serious: Yes (Death, Hospitalization)
  Sender: FDA-Public Use
  Company Number: IN-SA-2019SA040402

PATIENT
  Age: 48 Year
  Sex: Male
  Weight: 60 kg

DRUGS (2)
  1. INSULIN GLARGINE [Suspect]
     Active Substance: INSULIN GLARGINE
     Indication: DIABETES MELLITUS
     Dosage: 15 U, QD
     Route: 058
     Dates: start: 20181026
  2. LANTUS [Concomitant]
     Active Substance: INSULIN GLARGINE
     Dosage: 15 U, QD
     Route: 058

REACTIONS (1)
  - Guillain-Barre syndrome [Fatal]
